FAERS Safety Report 5826279-7 (Version None)
Quarter: 2008Q3

REPORT INFORMATION
  Report Type: 
  Country: None (occurrence: None)
  Receive Date: 20080723
  Receipt Date: 20080708
  Transmission Date: 20090109
  Serious: Yes (Other)
  Sender: FDA-Public Use
  Company Number: 2008S1012074

PATIENT
  Age: 14 Year
  Sex: Male

DRUGS (3)
  1. LORATADINE [Suspect]
     Indication: SEASONAL ALLERGY
  2. LANTUS [Concomitant]
  3. NOVORAPID (INSULIN ASPART) [Concomitant]

REACTIONS (2)
  - AGGRESSION [None]
  - HYPOGLYCAEMIA [None]
